FAERS Safety Report 17137362 (Version 1)
Quarter: 2019Q4

REPORT INFORMATION
  Report Type: Spontaneous
  Country: US (occurrence: US)
  Receive Date: 20191119
  Receipt Date: 20191119
  Transmission Date: 20200122
  Serious: Yes (Hospitalization)
  Sender: FDA-Public Use
  Company Number: None

PATIENT
  Age: 29 Year
  Sex: Male
  Weight: 65 kg

DRUGS (3)
  1. IFOSFAMIDE. [Concomitant]
     Active Substance: IFOSFAMIDE
     Dates: start: 20190424
  2. CISPLATIN (119875) [Suspect]
     Active Substance: CISPLATIN
     Dosage: ?          OTHER FREQUENCY:DAYS 2-5;?
     Dates: start: 20190423
  3. PACLITAXEL. [Concomitant]
     Active Substance: PACLITAXEL
     Dates: start: 20190423

REACTIONS (2)
  - Blood creatinine increased [None]
  - Acute kidney injury [None]

NARRATIVE: CASE EVENT DATE: 20191114
